FAERS Safety Report 6343350-4 (Version None)
Quarter: 2009Q3

REPORT INFORMATION
  Report Type: 
  Country: None (occurrence: None)
  Receive Date: 20090908
  Receipt Date: 20090831
  Transmission Date: 20100115
  Serious: Yes (Disabling, Other)
  Sender: FDA-Public Use
  Company Number: PHEH2009US04934

PATIENT
  Sex: Female

DRUGS (6)
  1. RECLAST [Suspect]
     Indication: OSTEOPOROSIS
     Dosage: UNK
     Dates: start: 20090216
  2. CITRACAL + D [Concomitant]
     Indication: OSTEOPOROSIS
     Dosage: DAILY PRN
     Route: 048
  3. ASCORBIC ACID [Concomitant]
     Dosage: DAILY PRN
     Route: 048
  4. M.V.I. [Concomitant]
     Dosage: DAILY PRN
     Route: 048
  5. FLEXERIL [Concomitant]
     Dosage: DAILY PRN
     Route: 048
  6. VICODIN [Concomitant]
     Dosage: DAILY PRN
     Route: 048

REACTIONS (18)
  - BONE NEOPLASM [None]
  - DYSPNOEA [None]
  - ERYTHEMA [None]
  - FEELING OF BODY TEMPERATURE CHANGE [None]
  - HEADACHE [None]
  - MUSCLE SPASMS [None]
  - MUSCULOSKELETAL PAIN [None]
  - MYALGIA [None]
  - OEDEMA PERIPHERAL [None]
  - PAIN [None]
  - PAIN IN EXTREMITY [None]
  - PARALYSIS [None]
  - PRURITUS [None]
  - SKIN ATROPHY [None]
  - SKIN DISCOLOURATION [None]
  - SKIN EXFOLIATION [None]
  - SKIN WRINKLING [None]
  - TREMOR [None]
